FAERS Safety Report 9767767 (Version 2)
Quarter: 2014Q1

REPORT INFORMATION
  Report Type: Report from Study
  Country: CN (occurrence: CN)
  Receive Date: 20131217
  Receipt Date: 20140217
  Transmission Date: 20141002
  Serious: Yes (Death, Other)
  Sender: FDA-Public Use
  Company Number: PHHY2013CN147852

PATIENT
  Sex: Female

DRUGS (2)
  1. GLIVEC [Suspect]
     Indication: ACUTE LYMPHOCYTIC LEUKAEMIA
     Dosage: 400 MG, QD
     Route: 048
     Dates: start: 20121218
  2. GLIVEC [Suspect]
     Dosage: UNK UKN, UNK
     Dates: start: 20121227, end: 201307

REACTIONS (4)
  - Haemorrhage intracranial [Fatal]
  - Leukaemic infiltration brain [Fatal]
  - Acute lymphocytic leukaemia recurrent [Fatal]
  - Agranulocytosis [Unknown]
